FAERS Safety Report 9426388 (Version 1)
Quarter: 2013Q3

REPORT INFORMATION
  Report Type: Spontaneous
  Country: US (occurrence: None)
  Receive Date: 20130729
  Receipt Date: 20130729
  Transmission Date: 20140515
  Serious: Yes (Other)
  Sender: FDA-Public Use
  Company Number: None

PATIENT
  Age: 57 Year
  Sex: Female

DRUGS (1)
  1. AUBAGIO, 14 MG, GENZYME [Suspect]
     Indication: MULTIPLE SCLEROSIS
     Route: 048
     Dates: start: 20130521, end: 20130716

REACTIONS (5)
  - Nausea [None]
  - Pyrexia [None]
  - Agitation [None]
  - Fatigue [None]
  - Depression [None]
